FAERS Safety Report 9938000 (Version 2)
Quarter: 2014Q1

REPORT INFORMATION
  Report Type: Report from Study
  Country: DE (occurrence: DE)
  Receive Date: 20140303
  Receipt Date: 20140303
  Transmission Date: 20141002
  Serious: Yes (Hospitalization)
  Sender: FDA-Public Use
  Company Number: DE-ROCHE-1347338

PATIENT
  Age: 52 Year
  Sex: Female
  Weight: 80 kg

DRUGS (9)
  1. TOCILIZUMAB [Suspect]
     Indication: RHEUMATOID ARTHRITIS
     Route: 042
     Dates: start: 20111017
  2. TOCILIZUMAB [Suspect]
     Route: 065
     Dates: start: 20111102
  3. TOCILIZUMAB [Suspect]
     Route: 065
     Dates: start: 20120522
  4. TOCILIZUMAB [Suspect]
     Route: 065
     Dates: start: 20121127
  5. LEFLUNOMIDE [Concomitant]
     Route: 065
     Dates: start: 20091103
  6. LEFLUNOMIDE [Concomitant]
     Route: 065
     Dates: start: 20100419
  7. LEFLUNOMIDE [Concomitant]
     Route: 065
     Dates: start: 20110523
  8. LEFLUNOMIDE [Concomitant]
     Route: 065
     Dates: start: 20111102
  9. LEFLUNOMIDE [Concomitant]
     Route: 065
     Dates: start: 20120522

REACTIONS (5)
  - Granuloma skin [Recovered/Resolved]
  - Adhesiolysis [Recovered/Resolved with Sequelae]
  - Small intestinal resection [Recovered/Resolved with Sequelae]
  - Abdominal adhesions [Unknown]
  - Impaired healing [Unknown]
